FAERS Safety Report 10235817 (Version 6)
Quarter: 2014Q3

REPORT INFORMATION
  Report Type: Report from Study
  Country: US (occurrence: US)
  Receive Date: 20140613
  Receipt Date: 20140826
  Transmission Date: 20150326
  Serious: Yes (Disabling, Other)
  Sender: FDA-Public Use
  Company Number: US-SA-2014SA034036

PATIENT
  Age: 24 Year
  Sex: Female
  Weight: 64.41 kg

DRUGS (4)
  1. CELEXA [Concomitant]
     Active Substance: CITALOPRAM HYDROBROMIDE
     Indication: DEPRESSION
     Dates: start: 2011
  2. BIOTIN [Concomitant]
     Active Substance: BIOTIN
     Dosage: 1000-4000 MG
     Route: 065
     Dates: start: 2014
  3. AUBAGIO [Suspect]
     Active Substance: TERIFLUNOMIDE
     Indication: MULTIPLE SCLEROSIS
     Route: 048
     Dates: start: 20140301
  4. PREDNISONE. [Concomitant]
     Active Substance: PREDNISONE

REACTIONS (14)
  - Multiple sclerosis relapse [Unknown]
  - Gait disturbance [Recovered/Resolved]
  - Vomiting [Unknown]
  - Paraesthesia [Recovered/Resolved]
  - Alopecia [Not Recovered/Not Resolved]
  - Diarrhoea [Recovered/Resolved]
  - Burning sensation [Recovered/Resolved]
  - Abortion induced [Unknown]
  - Female sterilisation [Unknown]
  - Headache [Recovered/Resolved]
  - Nausea [Recovered/Resolved]
  - Exposure during pregnancy [Unknown]
  - Abasia [Unknown]
  - Foetal heart rate abnormal [Unknown]

NARRATIVE: CASE EVENT DATE: 20140310
